FAERS Safety Report 22981565 (Version 3)
Quarter: 2023Q4

REPORT INFORMATION
  Report Type: Spontaneous
  Country: CA (occurrence: CA)
  Receive Date: 20230925
  Receipt Date: 20231030
  Transmission Date: 20240109
  Serious: Yes (Death)
  Sender: FDA-Public Use
  Company Number: CA-PFIZER INC-PV202300159334

PATIENT
  Age: 61 Year
  Sex: Male

DRUGS (3)
  1. MYLOTARG [Suspect]
     Active Substance: GEMTUZUMAB OZOGAMICIN
     Indication: Acute myeloid leukaemia
     Dosage: 3MG/M2 ON DAYS 1,4 AND 7
  2. CYTARABINE [Suspect]
     Active Substance: CYTARABINE
     Dosage: UNK
  3. DAUNORUBICIN [Suspect]
     Active Substance: DAUNORUBICIN
     Dosage: UNK

REACTIONS (1)
  - Cerebral haemorrhage [Fatal]
